FAERS Safety Report 18022836 (Version 1)
Quarter: 2020Q3

REPORT INFORMATION
  Report Type: Spontaneous
  Country: DK (occurrence: DK)
  Receive Date: 20200715
  Receipt Date: 20200715
  Transmission Date: 20201103
  Serious: Yes (Disabling, Other)
  Sender: FDA-Public Use
  Company Number: DK-ALK-ABELLO A/S-2019AA002239

PATIENT

DRUGS (1)
  1. GRAZAX [Suspect]
     Active Substance: PHLEUM PRATENSE POLLEN
     Indication: SEASONAL ALLERGY
     Dosage: 1 TAB, QD
     Route: 048
     Dates: start: 20181029, end: 20190304

REACTIONS (8)
  - Gastrooesophageal reflux disease [Recovered/Resolved]
  - Thyroid hormones decreased [Unknown]
  - Eosinophilic oesophagitis [Recovered/Resolved]
  - Hypothyroidism [Not Recovered/Not Resolved]
  - Memory impairment [Not Recovered/Not Resolved]
  - Lethargy [Recovered/Resolved]
  - Fatigue [Recovered/Resolved]
  - Disturbance in attention [Not Recovered/Not Resolved]

NARRATIVE: CASE EVENT DATE: 20181201
